FAERS Safety Report 14685274 (Version 2)
Quarter: 2018Q2

REPORT INFORMATION
  Report Type: Report from Study
  Country: US (occurrence: US)
  Receive Date: 20180327
  Receipt Date: 20180426
  Transmission Date: 20180711
  Serious: Yes (Other)
  Sender: FDA-Public Use
  Company Number: US-ASTELLAS-2018US014615

PATIENT
  Sex: Female

DRUGS (1)
  1. SOLIFENACIN [Suspect]
     Active Substance: SOLIFENACIN
     Indication: URGE INCONTINENCE
     Route: 048

REACTIONS (3)
  - Concussion [Unknown]
  - Treatment noncompliance [Unknown]
  - Accident [Unknown]

NARRATIVE: CASE EVENT DATE: 2018
